APPROVED DRUG PRODUCT: SACUBITRIL AND VALSARTAN
Active Ingredient: SACUBITRIL; VALSARTAN
Strength: 24MG;26MG
Dosage Form/Route: TABLET;ORAL
Application: A213668 | Product #001 | TE Code: AB
Applicant: HETERO LABS LTD UNIT III
Approved: Jul 17, 2025 | RLD: No | RS: No | Type: RX